FAERS Safety Report 23601361 (Version 1)
Quarter: 2024Q1

REPORT INFORMATION
  Report Type: Spontaneous
  Country: NO (occurrence: NO)
  Receive Date: 20240306
  Receipt Date: 20240306
  Transmission Date: 20240409
  Serious: Yes (Hospitalization, Disabling)
  Sender: FDA-Public Use
  Company Number: None

PATIENT
  Age: 67 Year
  Sex: Female

DRUGS (20)
  1. ACLASTA [Suspect]
     Active Substance: ZOLEDRONIC ACID
     Indication: Osteoporosis
     Dosage: LAST DOSE RECEIVED 22/MAR/2023
     Route: 042
     Dates: start: 20210116, end: 20230322
  2. EBASTINE [Concomitant]
     Active Substance: EBASTINE
     Indication: Hypersensitivity
     Dosage: 5 MG
     Route: 065
     Dates: start: 20220201
  3. ALBUTEROL SULFATE [Concomitant]
     Active Substance: ALBUTEROL SULFATE
     Indication: Chronic obstructive pulmonary disease
     Dosage: 0.1 MG, QID (FORMULATION: INHALASJONSAEROSOL, SUSPENSJON)
     Route: 065
     Dates: start: 20220201
  4. Atorvastatin pensa [Concomitant]
     Indication: Blood cholesterol increased
     Dosage: 80 MG, QD
     Route: 065
     Dates: start: 20220131
  5. CIPRALEX [Concomitant]
     Active Substance: ESCITALOPRAM OXALATE
     Indication: Depression
     Dosage: 10 MG, QD
     Route: 065
     Dates: start: 20230401
  6. CHOLECALCIFEROL [Concomitant]
     Active Substance: CHOLECALCIFEROL
     Indication: Vitamin D deficiency
     Dosage: 800IE X 1CONTINUED USE OF MEDICINAL PRODUCT
     Route: 065
     Dates: start: 20240101
  7. ENTOCORT [Concomitant]
     Active Substance: BUDESONIDE
     Indication: Diarrhoea
     Dosage: 9 MG A DAY FOR 1 MONTH, THEN DOSE TAPERING (FORMULATION: DEPOTKAPSEL, HARD)
     Route: 065
     Dates: start: 20230404
  8. EZETIMIBE [Concomitant]
     Active Substance: EZETIMIBE
     Indication: Blood cholesterol increased
     Dosage: 10 MG, QD
     Route: 065
     Dates: start: 20220131
  9. SUMATRIPTAN SUCCINATE [Concomitant]
     Active Substance: SUMATRIPTAN SUCCINATE
     Indication: Migraine
     Dosage: 100 MG
     Route: 065
     Dates: start: 20220201
  10. IMOVANE [Concomitant]
     Active Substance: ZOPICLONE
     Indication: Insomnia
     Dosage: 7.5 MG, QD
     Route: 065
     Dates: start: 20220201
  11. LACTULOSE [Concomitant]
     Active Substance: LACTULOSE
     Indication: Constipation
     Dosage: 15 DF (FORMULATION: MIKSTUR, OPPL?SNING)
     Route: 065
     Dates: start: 20221201
  12. LAMICTAL [Concomitant]
     Active Substance: LAMOTRIGINE
     Indication: Bipolar disorder
     Dosage: 100 MG, BID
     Route: 065
     Dates: start: 20230531
  13. MIANSERIN [Concomitant]
     Active Substance: MIANSERIN
     Indication: Depression
     Dosage: 90 MG, QD
     Route: 065
     Dates: start: 20230501
  14. Paralgin forte [Concomitant]
     Indication: Pain in jaw
     Dosage: 4 TO 6 TIMES A DAY
     Route: 065
     Dates: start: 20221101
  15. Paralgin forte [Concomitant]
     Indication: Back pain
  16. SEROQUEL [Concomitant]
     Active Substance: QUETIAPINE FUMARATE
     Indication: Bipolar disorder
     Dosage: 350 MG, QD
     Route: 065
     Dates: start: 20230601
  17. OXAZEPAM [Concomitant]
     Active Substance: OXAZEPAM
     Indication: Anxiety
     Dosage: 10 MG, QD
     Route: 065
     Dates: start: 20220501
  18. PANTOPRAZOLE SODIUM [Concomitant]
     Active Substance: PANTOPRAZOLE SODIUM
     Indication: Gastrooesophageal reflux disease
     Dosage: 40 MG, QD
     Route: 065
     Dates: start: 20220131
  19. TRELEGY ELLIPTA [Concomitant]
     Active Substance: FLUTICASONE FUROATE\UMECLIDINIUM BROMIDE\VILANTEROL TRIFENATATE
     Indication: Chronic obstructive pulmonary disease
     Dosage: 1 DF, QD (FORMULATION: INHALASJONSPULVER, DOSEDISPENSERT)
     Route: 065
     Dates: start: 20230101
  20. VALSARTAN KRKA [Concomitant]
     Indication: Hypertension
     Dosage: 160 MG, QD
     Route: 065
     Dates: start: 20220131

REACTIONS (1)
  - Osteonecrosis of jaw [Not Recovered/Not Resolved]

NARRATIVE: CASE EVENT DATE: 20240101
